FAERS Safety Report 5467094-6 (Version None)
Quarter: 2007Q3

REPORT INFORMATION
  Report Type: 
  Country: None (occurrence: None)
  Receive Date: 20070920
  Receipt Date: 20070907
  Transmission Date: 20080115
  Serious: Yes (Hospitalization)
  Sender: FDA-Public Use
  Company Number: CIP07001725

PATIENT
  Sex: Female

DRUGS (2)
  1. ACTONEL [Suspect]
     Indication: OSTEOPOROSIS POSTMENOPAUSAL
     Dosage: 35 MG ONCE WEEKLY, ORAL
     Route: 048
     Dates: start: 20070701, end: 20070801
  2. DRUG NOS [Concomitant]

REACTIONS (6)
  - EXTRAOCULAR MUSCLE DISORDER [None]
  - EYE DISORDER [None]
  - EYE LUXATION [None]
  - EYE OEDEMA [None]
  - EYELID PTOSIS [None]
  - LACRIMATION INCREASED [None]
